FAERS Safety Report 24417380 (Version 1)
Quarter: 2024Q4

REPORT INFORMATION
  Report Type: Report from Study
  Country: US (occurrence: US)
  Receive Date: 20241009
  Receipt Date: 20241009
  Transmission Date: 20250115
  Serious: Yes (Other)
  Sender: GILEAD
  Company Number: US-GILEAD-2024-0680051

PATIENT
  Sex: Female

DRUGS (8)
  1. AMBRISENTAN [Suspect]
     Active Substance: AMBRISENTAN
     Indication: Pulmonary arterial hypertension
     Dosage: 10 MG, QD
     Route: 065
     Dates: start: 20220331
  2. AMBRISENTAN [Suspect]
     Active Substance: AMBRISENTAN
     Dosage: 10 MG, QD
     Route: 065
     Dates: start: 20220331
  3. VELETRI [Concomitant]
     Active Substance: EPOPROSTENOL
  4. SILDENAFIL [Concomitant]
     Active Substance: SILDENAFIL
  5. AMLODIPINE [Concomitant]
     Active Substance: AMLODIPINE BESYLATE
  6. PREDNISONE [Concomitant]
     Active Substance: PREDNISONE
  7. AZITHROMYCIN [AZITHROMYCIN DIHYDRATE] [Concomitant]
  8. IPRATROPIUM [Concomitant]
     Active Substance: IPRATROPIUM

REACTIONS (9)
  - Cataract [Unknown]
  - Rhinorrhoea [Unknown]
  - Hypersensitivity [Not Recovered/Not Resolved]
  - Peripheral swelling [Unknown]
  - Headache [Unknown]
  - Lung disorder [Unknown]
  - Wheezing [Unknown]
  - Epistaxis [Unknown]
  - Gingival bleeding [Unknown]
